FAERS Safety Report 24348520 (Version 2)
Quarter: 2024Q4

REPORT INFORMATION
  Report Type: Spontaneous
  Country: US (occurrence: US)
  Receive Date: 20240923
  Receipt Date: 20241004
  Transmission Date: 20250114
  Serious: Yes (Other)
  Sender: AUROBINDO
  Company Number: US-AUROBINDO-AUR-APL-2024-045706

PATIENT
  Sex: Female

DRUGS (7)
  1. LORAZEPAM [Suspect]
     Active Substance: LORAZEPAM
     Indication: Tardive dyskinesia
     Dosage: 1 MILLIGRAM, TWO TIMES A DAY
     Route: 048
  2. LORAZEPAM [Suspect]
     Active Substance: LORAZEPAM
     Dosage: 5 MILLIGRAM, DAILY
     Route: 048
  3. FLUOXETINE [Concomitant]
     Active Substance: FLUOXETINE HYDROCHLORIDE
     Indication: Catatonia
     Dosage: 20 MILLIGRAM, DAILY
     Route: 065
  4. ARIPIPRAZOLE [Concomitant]
     Active Substance: ARIPIPRAZOLE
     Indication: Catatonia
     Dosage: 5 MILLIGRAM, DAILY
     Route: 065
  5. LORAZEPAM [Concomitant]
     Active Substance: LORAZEPAM
     Indication: Catatonia
     Dosage: UNK
     Route: 042
  6. VALBENAZINE [Concomitant]
     Active Substance: VALBENAZINE
     Indication: Tardive dyskinesia
     Dosage: 40 MILLIGRAM, DAILY
     Route: 065
  7. VALBENAZINE [Concomitant]
     Active Substance: VALBENAZINE
     Dosage: 80 MILLIGRAM, DAILY
     Route: 048

REACTIONS (1)
  - Therapy non-responder [Unknown]
